FAERS Safety Report 7242994-5 (Version None)
Quarter: 2011Q1

REPORT INFORMATION
  Report Type: 
  Country: None (occurrence: None)
  Receive Date: 20110125
  Receipt Date: 20110118
  Transmission Date: 20110831
  Serious: Yes (Hospitalization)
  Sender: FDA-Public Use
  Company Number: US-JNJFOC-20101001975

PATIENT
  Sex: Female
  Weight: 62.6 kg

DRUGS (3)
  1. DURAGESIC-50 [Suspect]
     Indication: ARTHRALGIA
     Route: 062
  2. DILAUDID [Suspect]
     Indication: ILL-DEFINED DISORDER
     Route: 065
  3. ULTRAM [Concomitant]
     Indication: ILL-DEFINED DISORDER
     Route: 048

REACTIONS (6)
  - WITHDRAWAL SYNDROME [None]
  - RENAL FAILURE [None]
  - DRUG INEFFECTIVE [None]
  - BLOOD CHOLESTEROL INCREASED [None]
  - DRUG SCREEN NEGATIVE [None]
  - MUSCLE TIGHTNESS [None]
